FAERS Safety Report 14710425 (Version 1)
Quarter: 2018Q2

REPORT INFORMATION
  Report Type: Spontaneous
  Country: FR (occurrence: FR)
  Receive Date: 20180403
  Receipt Date: 20180403
  Transmission Date: 20180711
  Serious: Yes (Other)
  Sender: FDA-Public Use
  Company Number: GB-ASTRAZENECA-2018SE42323

PATIENT

DRUGS (3)
  1. MORPHINE [Concomitant]
     Active Substance: MORPHINE
  2. NALOXEGOL [Suspect]
     Active Substance: NALOXEGOL
     Indication: CONSTIPATION
     Dosage: UNKNOWN
     Route: 048
  3. SENNOSIDE A+B [Suspect]
     Active Substance: SENNOSIDES A AND B
     Indication: CONSTIPATION
     Dosage: UNKNOWN
     Route: 065

REACTIONS (4)
  - Product use issue [Unknown]
  - Faecaloma [Unknown]
  - Constipation [Unknown]
  - Drug ineffective [Unknown]

NARRATIVE: CASE EVENT DATE: 2017
